FAERS Safety Report 10581474 (Version 1)
Quarter: 2014Q4

REPORT INFORMATION
  Report Type: Spontaneous
  Country: US (occurrence: None)
  Receive Date: 20141112
  Receipt Date: 20141112
  Transmission Date: 20150529
  Serious: Yes (Life-Threatening, Hospitalization)
  Sender: FDA-Public Use
  Company Number: None

PATIENT
  Age: 61 Year
  Sex: Female

DRUGS (1)
  1. XARELTO [Suspect]
     Active Substance: RIVAROXABAN
     Indication: ATRIAL FIBRILLATION
     Dosage: 2 TABLETS
     Route: 048

REACTIONS (4)
  - Blood pressure fluctuation [None]
  - Gastrointestinal haemorrhage [None]
  - Hypotension [None]
  - Pulse abnormal [None]

NARRATIVE: CASE EVENT DATE: 20130328
